FAERS Safety Report 11830786 (Version 1)
Quarter: 2015Q4

REPORT INFORMATION
  Report Type: Spontaneous
  Country: US (occurrence: None)
  Receive Date: 20151211
  Receipt Date: 20151211
  Transmission Date: 20160305
  Serious: No
  Sender: FDA-Public Use
  Company Number: None

PATIENT
  Age: 41 Year
  Sex: Male

DRUGS (9)
  1. AMITIZA [Concomitant]
     Active Substance: LUBIPROSTONE
  2. LIDOCAINE. [Concomitant]
     Active Substance: LIDOCAINE
  3. TAMSULOSIN [Concomitant]
     Active Substance: TAMSULOSIN
  4. GABAPENTIN. [Concomitant]
     Active Substance: GABAPENTIN
  5. MORPHINE SUL [Concomitant]
  6. ONDANSETRON [Concomitant]
     Active Substance: ONDANSETRON
  7. PROCHLORPER [Concomitant]
  8. XALKORI [Suspect]
     Active Substance: CRIZOTINIB
     Indication: LUNG NEOPLASM MALIGNANT
     Route: 048
     Dates: start: 20150701
  9. MIRTAZAPINE. [Concomitant]
     Active Substance: MIRTAZAPINE

REACTIONS (1)
  - Drug ineffective [None]

NARRATIVE: CASE EVENT DATE: 201512
